FAERS Safety Report 8614103-9 (Version None)
Quarter: 2012Q3

REPORT INFORMATION
  Report Type: 
  Country: None (occurrence: None)
  Receive Date: 20120823
  Receipt Date: 20120727
  Transmission Date: 20120928
  Serious: No
  Sender: FDA-Public Use
  Company Number: US-009507513-1207USA012394

PATIENT

DRUGS (5)
  1. SYMBICORT [Suspect]
     Dosage: UNK DF, UNK
     Route: 055
  2. METOPROLOL TARTRATE [Suspect]
  3. PRINIVIL [Suspect]
     Route: 048
  4. SYMBICORT [Suspect]
     Dosage: 1 DF, QD
     Route: 055
  5. GABAPENTIN [Concomitant]
     Route: 048

REACTIONS (2)
  - INTENTIONAL DRUG MISUSE [None]
  - DYSPNOEA [None]
